FAERS Safety Report 24840439 (Version 3)
Quarter: 2025Q3

REPORT INFORMATION
  Report Type: Spontaneous
  Country: US (occurrence: US)
  Receive Date: 20250114
  Receipt Date: 20250803
  Transmission Date: 20251021
  Serious: Yes (Hospitalization, Other)
  Sender: ALEXION PHARMACEUTICALS
  Company Number: US-AstraZeneca-CH-00783193AP

PATIENT
  Sex: Female

DRUGS (2)
  1. BYDUREON BCISE [Suspect]
     Active Substance: EXENATIDE
     Route: 065
  2. FARXIGA [Suspect]
     Active Substance: DAPAGLIFLOZIN PROPANEDIOL

REACTIONS (10)
  - Myocardial infarction [Unknown]
  - White blood cell count increased [Unknown]
  - Incorrect dose administered [Unknown]
  - Injection site bruising [Unknown]
  - Drug resistance [Unknown]
  - Injection site haemorrhage [Unknown]
  - Injection site discharge [Unknown]
  - White blood cell count increased [Unknown]
  - Urinary tract infection [Unknown]
  - Infection [Unknown]
